FAERS Safety Report 6719434-5 (Version None)
Quarter: 2010Q2

REPORT INFORMATION
  Report Type: 
  Country: None (occurrence: None)
  Receive Date: 20100506
  Receipt Date: 20100422
  Transmission Date: 20101027
  Serious: Yes (Other)
  Sender: FDA-Public Use
  Company Number: 2010-00459

PATIENT
  Age: 64 Year
  Sex: Female

DRUGS (4)
  1. SIMVASTATIN [Suspect]
     Indication: DRUG USE FOR UNKNOWN INDICATION
  2. ZOLPIDEM [Concomitant]
  3. CARBAMAZEPINE [Concomitant]
  4. LAMOTRIGINE [Concomitant]

REACTIONS (4)
  - ATAXIA [None]
  - COGNITIVE DISORDER [None]
  - DYSGRAPHIA [None]
  - FALL [None]
